FAERS Safety Report 4658636-9 (Version None)
Quarter: 2005Q2

REPORT INFORMATION
  Report Type: 
  Country: None (occurrence: None)
  Receive Date: 20050511
  Receipt Date: 20050504
  Transmission Date: 20051028
  Serious: Yes (Other)
  Sender: FDA-Public Use
  Company Number: 402959

PATIENT
  Age: 61 Year
  Sex: Male

DRUGS (4)
  1. COROPRES [Suspect]
     Indication: CARDIAC FAILURE
     Dosage: 31.25MG PER DAY
     Route: 048
  2. COZAAR [Concomitant]
     Indication: DRUG USE FOR UNKNOWN INDICATION
     Route: 065
  3. MARCOUMAR [Concomitant]
     Indication: DRUG USE FOR UNKNOWN INDICATION
     Route: 065
  4. SEGURIL [Concomitant]
     Indication: DRUG USE FOR UNKNOWN INDICATION
     Route: 065

REACTIONS (2)
  - DRY MOUTH [None]
  - DYSPHONIA [None]
